FAERS Safety Report 16079676 (Version 2)
Quarter: 2019Q1

REPORT INFORMATION
  Report Type: Report from Study
  Country: PK (occurrence: PK)
  Receive Date: 20190315
  Receipt Date: 20190319
  Transmission Date: 20190418
  Serious: Yes (Death)
  Sender: FDA-Public Use
  Company Number: PHHY2019PK057683

PATIENT
  Age: 44 Year
  Sex: Male

DRUGS (1)
  1. VOTRIENT [Suspect]
     Active Substance: PAZOPANIB HYDROCHLORIDE
     Indication: RENAL CANCER
     Dosage: 2 DF, QD
     Route: 048
     Dates: start: 20180324

REACTIONS (4)
  - Respiratory arrest [Fatal]
  - Dyspnoea [Fatal]
  - Malignant neoplasm progression [Fatal]
  - Renal cancer [Fatal]

NARRATIVE: CASE EVENT DATE: 20190307
